FAERS Safety Report 17469725 (Version 4)
Quarter: 2020Q2

REPORT INFORMATION
  Report Type: Spontaneous
  Country: US (occurrence: US)
  Receive Date: 20200227
  Receipt Date: 20200406
  Transmission Date: 20200713
  Serious: No
  Sender: FDA-Public Use
  Company Number: US-ACTELION-A-US2020-202322

PATIENT
  Sex: Male
  Weight: 74.83 kg

DRUGS (2)
  1. ADCIRCA [Concomitant]
     Active Substance: TADALAFIL
  2. UPTRAVI [Suspect]
     Active Substance: SELEXIPAG
     Indication: PULMONARY ARTERIAL HYPERTENSION
     Dosage: 200 MCG, BID
     Route: 048

REACTIONS (5)
  - Cough [Unknown]
  - Drug ineffective [Unknown]
  - Lethargy [Unknown]
  - Apathy [Unknown]
  - Musculoskeletal stiffness [Unknown]
